FAERS Safety Report 4390956-8 (Version None)
Quarter: 2004Q3

REPORT INFORMATION
  Report Type: 
  Country: None (occurrence: None)
  Receive Date: 20040706
  Receipt Date: 20040628
  Transmission Date: 20050211
  Serious: Yes (Death)
  Sender: FDA-Public Use
  Company Number: 04-06-0839

PATIENT
  Age: 45 Year
  Sex: Male

DRUGS (2)
  1. CLOZAPINE [Suspect]
     Indication: SCHIZOPHRENIA
     Dosage: 400MG QHS ORAL
     Route: 048
     Dates: start: 20010201, end: 20040516
  2. AMANTADINE HCL [Concomitant]

REACTIONS (1)
  - ARRHYTHMIA [None]
